FAERS Safety Report 16700819 (Version 4)
Quarter: 2020Q3

REPORT INFORMATION
  Report Type: Report from Study
  Country: US (occurrence: US)
  Receive Date: 20190814
  Receipt Date: 20200803
  Transmission Date: 20201102
  Serious: Yes (Other)
  Sender: FDA-Public Use
  Company Number: PHEH2019US033155

PATIENT
  Sex: Female

DRUGS (1)
  1. PROMACTA [Suspect]
     Active Substance: ELTROMBOPAG OLAMINE
     Indication: PRODUCT USED FOR UNKNOWN INDICATION
     Dosage: UNK
     Route: 065

REACTIONS (6)
  - Multiple sclerosis [Unknown]
  - Platelet count decreased [Unknown]
  - Contusion [Unknown]
  - Memory impairment [Unknown]
  - Immune thrombocytopenia [Unknown]
  - Product dose omission issue [Unknown]
